FAERS Safety Report 22335433 (Version 1)
Quarter: 2023Q2

REPORT INFORMATION
  Report Type: Spontaneous
  Country: GB (occurrence: GB)
  Receive Date: 20230518
  Receipt Date: 20230518
  Transmission Date: 20230722
  Serious: Yes (Disabling, Other)
  Sender: FDA-Public Use
  Company Number: GB-MHRA-MED-202305040705175180-VFLWZ

PATIENT
  Age: 33 Year
  Sex: Male
  Weight: 105 kg

DRUGS (1)
  1. METRONIDAZOLE [Suspect]
     Active Substance: METRONIDAZOLE
     Indication: Trichomoniasis
     Dosage: 400 MILLIGRAM, TWO TIMES A DAY
     Route: 065
     Dates: start: 20230330, end: 20230401

REACTIONS (6)
  - Neuropathy peripheral [Not Recovered/Not Resolved]
  - Burning sensation [Unknown]
  - Paraesthesia [Unknown]
  - Discomfort [Unknown]
  - Chest pain [Unknown]
  - Dizziness [Unknown]

NARRATIVE: CASE EVENT DATE: 20230401
